FAERS Safety Report 9607348 (Version 1)
Quarter: 2013Q4

REPORT INFORMATION
  Report Type: Spontaneous
  Country: US (occurrence: None)
  Receive Date: 20131004
  Receipt Date: 20131004
  Transmission Date: 20140711
  Serious: Yes (Hospitalization)
  Sender: FDA-Public Use
  Company Number: 151623

PATIENT
  Age: 34 Year
  Sex: Female
  Weight: 65 kg

DRUGS (1)
  1. LEUCOVORIN CALCIUM [Suspect]
     Indication: COLORECTAL CANCER METASTATIC
     Dosage: 400MG/M2 ON DAY ONE EVERY 14 DAYS
     Dates: start: 20130530, end: 20130813

REACTIONS (9)
  - Abdominal pain [None]
  - Neutrophil count decreased [None]
  - Nausea [None]
  - Vomiting [None]
  - Malaise [None]
  - Abdominal distension [None]
  - Pyrexia [None]
  - White blood cell count decreased [None]
  - Colitis [None]
